FAERS Safety Report 9696406 (Version 2)
Quarter: 2014Q1

REPORT INFORMATION
  Report Type: Spontaneous
  Country: IT (occurrence: IT)
  Receive Date: 20131119
  Receipt Date: 20140113
  Transmission Date: 20141002
  Serious: Yes (Hospitalization)
  Sender: FDA-Public Use
  Company Number: IT-PFIZER INC-2013329136

PATIENT
  Age: 83 Year
  Sex: Male

DRUGS (4)
  1. AMLODIPINE BESILATE [Suspect]
     Dosage: UNK
     Route: 065
     Dates: start: 20130101, end: 20131003
  2. RISPERIDONE [Suspect]
     Dosage: 2 MG, 1X/DAY
     Route: 048
     Dates: start: 20130926, end: 20131003
  3. TARGIN [Suspect]
     Dosage: 1 DF, DAILY
     Route: 048
     Dates: start: 20130926, end: 20131003
  4. CARDIOASPIRIN [Concomitant]
     Dosage: UNK
     Route: 065

REACTIONS (1)
  - Agitation [Recovering/Resolving]
